FAERS Safety Report 7069725-6 (Version None)
Quarter: 2010Q4

REPORT INFORMATION
  Report Type: 
  Country: None (occurrence: None)
  Receive Date: 20101028
  Receipt Date: 20100517
  Transmission Date: 20110411
  Serious: No
  Sender: FDA-Public Use
  Company Number: US-WYE-H15195210

PATIENT
  Sex: Female
  Weight: 62.65 kg

DRUGS (4)
  1. EFFEXOR [Suspect]
     Indication: HOT FLUSH
     Route: 048
     Dates: start: 20080101, end: 20090101
  2. EFFEXOR [Suspect]
     Route: 048
     Dates: start: 20090101, end: 20100101
  3. EFFEXOR [Suspect]
     Route: 048
     Dates: start: 20100101, end: 20100101
  4. EFFEXOR [Suspect]
     Dosage: ^OPENS THE CAPSULE AND REMOVES SOME OF THE CONTENTS BEFORE PUTTING IT BACK TOGETHER^
     Route: 048
     Dates: start: 20100101

REACTIONS (7)
  - CONFUSIONAL STATE [None]
  - DIZZINESS [None]
  - DRUG WITHDRAWAL SYNDROME [None]
  - HEADACHE [None]
  - NERVOUSNESS [None]
  - THINKING ABNORMAL [None]
  - WEIGHT INCREASED [None]
